FAERS Safety Report 16167317 (Version 2)
Quarter: 2019Q2

REPORT INFORMATION
  Report Type: Report from Study
  Country: None (occurrence: CA)
  Receive Date: 20190408
  Receipt Date: 20190416
  Transmission Date: 20190711
  Serious: Yes (Hospitalization)
  Sender: FDA-Public Use
  Company Number: CA-ABBVIE-19K-028-2732995-00

PATIENT
  Sex: Male

DRUGS (4)
  1. HUMIRA [Suspect]
     Active Substance: ADALIMUMAB
     Route: 058
     Dates: start: 20190322, end: 20190322
  2. HUMIRA [Suspect]
     Active Substance: ADALIMUMAB
     Route: 058
     Dates: start: 20190409, end: 20190409
  3. CANNABIS [Concomitant]
     Active Substance: CANNABIS SATIVA SUBSP. INDICA TOP
     Indication: PRODUCT USED FOR UNKNOWN INDICATION
  4. HUMIRA [Suspect]
     Active Substance: ADALIMUMAB
     Indication: CROHN^S DISEASE
     Route: 058
     Dates: start: 20170622

REACTIONS (17)
  - Weight decreased [Not Recovered/Not Resolved]
  - Gait disturbance [Unknown]
  - Pain in extremity [Unknown]
  - Hypophagia [Unknown]
  - Inguinal hernia [Not Recovered/Not Resolved]
  - Gait inability [Unknown]
  - Decreased activity [Not Recovered/Not Resolved]
  - Haematochezia [Unknown]
  - Dyspepsia [Not Recovered/Not Resolved]
  - Muscle atrophy [Not Recovered/Not Resolved]
  - Colonoscopy abnormal [Not Recovered/Not Resolved]
  - Stress [Unknown]
  - Dyschezia [Unknown]
  - Abdominal pain [Unknown]
  - Psychotic disorder [Unknown]
  - Muscle spasms [Unknown]
  - Pain [Not Recovered/Not Resolved]

NARRATIVE: CASE EVENT DATE: 2019
